FAERS Safety Report 17611598 (Version 1)
Quarter: 2020Q2

REPORT INFORMATION
  Report Type: Spontaneous
  Country: CA (occurrence: CA)
  Receive Date: 20200401
  Receipt Date: 20200401
  Transmission Date: 20200713
  Serious: Yes (Hospitalization, Other)
  Sender: FDA-Public Use
  Company Number: CA-SAMSUNG BIOEPIS-SB-2020-10655

PATIENT
  Age: 54 Year
  Sex: Male

DRUGS (2)
  1. PANTOPRAZOLE [Concomitant]
     Active Substance: PANTOPRAZOLE
     Indication: PRODUCT USED FOR UNKNOWN INDICATION
     Dosage: UNKNOWN
     Route: 048
  2. INFLIXIMAB [Suspect]
     Active Substance: INFLIXIMAB
     Indication: CROHN^S DISEASE
     Route: 042

REACTIONS (12)
  - Burning sensation [Unknown]
  - Fall [Unknown]
  - Rash [Unknown]
  - Blood pressure fluctuation [Unknown]
  - Crying [Unknown]
  - Depression [Unknown]
  - Disorientation [Unknown]
  - Condition aggravated [Unknown]
  - Fatigue [Unknown]
  - Heart rate decreased [Unknown]
  - Pain [Unknown]
  - Retinal detachment [Unknown]
